FAERS Safety Report 4390252-9 (Version None)
Quarter: 2004Q2

REPORT INFORMATION
  Report Type: 
  Country: None (occurrence: None)
  Receive Date: 20040630
  Receipt Date: 20040616
  Transmission Date: 20050107
  Serious: Yes (Life-Threatening)
  Sender: FDA-Public Use
  Company Number: GB-JNJFOC-20040605200

PATIENT
  Age: 71 Year
  Sex: Female

DRUGS (9)
  1. REMINYL [Suspect]
     Indication: DEMENTIA ALZHEIMER'S TYPE
     Dosage: 12 MG, 2 IN 1 DAY, ORAL
     Route: 048
     Dates: start: 20010128, end: 20040507
  2. ASPIRIN [Suspect]
     Indication: MYOCARDIAL ISCHAEMIA
     Dosage: 75 MG, 1 IN 1DAY, ORAL
     Route: 048
     Dates: start: 19950209, end: 20040507
  3. DICLOFEANC (DICLOFENAC) [Suspect]
     Indication: ARTHRALGIA
     Dosage: 75 MG, 2 IN 1 DAY, ORAL
     Route: 048
     Dates: start: 20040331, end: 20040507
  4. OXYBUTYNIN [Concomitant]
  5. ATORVASTATIN CALCIUM [Concomitant]
  6. ATENOLOL [Concomitant]
  7. PARACETAMOL (PARACETAMOL) [Concomitant]
  8. DIAZEPAM [Concomitant]
  9. LACTULOSE [Concomitant]

REACTIONS (1)
  - DUODENAL ULCER PERFORATION [None]
